FAERS Safety Report 9853245 (Version 1)
Quarter: 2014Q1

REPORT INFORMATION
  Report Type: Spontaneous
  Country: US (occurrence: US)
  Receive Date: 20140129
  Receipt Date: 20140129
  Transmission Date: 20141002
  Serious: Yes (Other)
  Sender: FDA-Public Use
  Company Number: US-ACTAVIS-2014-00733

PATIENT
  Age: 20 Year
  Sex: Female

DRUGS (1)
  1. IBUPROFEN (AMALLC) [Suspect]
     Indication: DYSMENORRHOEA
     Dosage: UNK, AS NEEDED
     Route: 065

REACTIONS (1)
  - Erythema multiforme [Recovered/Resolved]
